FAERS Safety Report 5002392-1 (Version None)
Quarter: 2006Q2

REPORT INFORMATION
  Report Type: 
  Country: None (occurrence: None)
  Receive Date: 20060512
  Receipt Date: 20060502
  Transmission Date: 20061013
  Serious: Yes (Death, Other)
  Sender: FDA-Public Use
  Company Number: 2006US000767

PATIENT
  Age: 70 Year
  Sex: Male
  Weight: 97.5 kg

DRUGS (6)
  1. AMEVIVE [Suspect]
     Indication: PSORIASIS
     Dosage: 15 MG, WEEKLY, INTRAMUSCULAR
     Route: 030
     Dates: start: 20030417, end: 20030703
  2. SORIATANE [Concomitant]
  3. TEMOVATE [Concomitant]
  4. BETAMETHASONE DIPROPIONATE (BETAMETHASONE DIPROPIONATE) [Concomitant]
  5. HYDROXYZINE [Concomitant]
  6. OXSORALEN-ULTRA (METHOXSALEN) [Concomitant]

REACTIONS (11)
  - ADENOCARCINOMA PANCREAS [None]
  - BILIARY DILATATION [None]
  - DIABETES MELLITUS INADEQUATE CONTROL [None]
  - DRUG INEFFECTIVE [None]
  - DUODENAL STENOSIS [None]
  - LYMPHADENOPATHY [None]
  - OBSTRUCTION GASTRIC [None]
  - PANCREATIC CARCINOMA [None]
  - REFLUX OESOPHAGITIS [None]
  - VENOUS STENOSIS [None]
  - WEIGHT DECREASED [None]
